FAERS Safety Report 8495159-3 (Version None)
Quarter: 2012Q3

REPORT INFORMATION
  Report Type: 
  Country: None (occurrence: None)
  Receive Date: 20120709
  Receipt Date: 20120628
  Transmission Date: 20120928
  Serious: Yes (Life-Threatening, Other)
  Sender: FDA-Public Use
  Company Number: NL-AMGEN-NLDSP2012040939

PATIENT
  Age: 53 Year
  Sex: Male
  Weight: 68 kg

DRUGS (2)
  1. ENBREL [Suspect]
     Indication: ANKYLOSING SPONDYLITIS
     Dosage: 50 MG, WEEKLY
     Dates: start: 20070820, end: 20120620
  2. DICLOFENAC [Concomitant]
     Dosage: 75 MG, 2X/DAY, AS NEEDED
     Dates: start: 19860101

REACTIONS (1)
  - NON-SMALL CELL LUNG CANCER [None]
